FAERS Safety Report 4410779-0 (Version None)
Quarter: 2004Q3

REPORT INFORMATION
  Report Type: 
  Country: None (occurrence: None)
  Receive Date: 20040726
  Receipt Date: 20040712
  Transmission Date: 20050211
  Serious: Yes (Other)
  Sender: FDA-Public Use
  Company Number: DSA_70336_2004

PATIENT
  Age: 58 Year
  Sex: Female

DRUGS (3)
  1. DARVON [Suspect]
     Indication: PAIN
     Dosage: CAP PO
     Route: 048
     Dates: start: 19900101
  2. DARVOCET-N 100 [Suspect]
     Indication: PAIN
     Dosage: TAB PO
     Route: 048
     Dates: start: 19900101
  3. DEMEROL [Suspect]
     Indication: PAIN
     Dosage: DF

REACTIONS (2)
  - BONE PAIN [None]
  - PSYCHOTIC DISORDER [None]
